FAERS Safety Report 23745500 (Version 1)
Quarter: 2024Q2

REPORT INFORMATION
  Report Type: Spontaneous
  Country: US (occurrence: US)
  Receive Date: 20240416
  Receipt Date: 20240416
  Transmission Date: 20240716
  Serious: No
  Sender: FDA-Public Use
  Company Number: US-009507513-2403USA006109

PATIENT
  Age: 66 Year
  Sex: Male

DRUGS (4)
  1. PRIMAXIN IV [Suspect]
     Active Substance: CILASTATIN SODIUM\IMIPENEM
     Indication: Device related infection
     Dosage: 1 GRAM, Q8H
     Route: 042
     Dates: start: 201703, end: 201705
  2. PRIMAXIN IV [Suspect]
     Active Substance: CILASTATIN SODIUM\IMIPENEM
     Indication: Mycobacterial infection
  3. AMIKACIN [Concomitant]
     Active Substance: AMIKACIN
     Indication: Device related infection
     Dosage: 750 MILLIGRAM, Q12H
     Route: 042
     Dates: start: 201703, end: 201705
  4. AMIKACIN [Concomitant]
     Active Substance: AMIKACIN
     Indication: Mycobacterial infection

REACTIONS (1)
  - Product use in unapproved indication [Unknown]

NARRATIVE: CASE EVENT DATE: 20170301
